FAERS Safety Report 16111580 (Version 1)
Quarter: 2019Q2

REPORT INFORMATION
  Report Type: Spontaneous
  Country: US (occurrence: US)
  Receive Date: 20190322
  Receipt Date: 20190322
  Transmission Date: 20190711
  Serious: Yes (Disabling, Other)
  Sender: FDA-Public Use
  Company Number: None

PATIENT
  Age: 37 Year
  Sex: Female
  Weight: 58.5 kg

DRUGS (12)
  1. WOMEN^S MULTIVITAMIN [Concomitant]
  2. BACLOFEN PUMP [Concomitant]
     Active Substance: BACLOFEN
  3. OCREVUS [Suspect]
     Active Substance: OCRELIZUMAB
     Indication: MULTIPLE SCLEROSIS
     Dosage: ?          OTHER FREQUENCY:IV EVERY 6 MONTHS;?
     Route: 042
  4. TEGRETOL [Concomitant]
     Active Substance: CARBAMAZEPINE
  5. GABAPENTIN. [Concomitant]
     Active Substance: GABAPENTIN
  6. CLONAZEPAM. [Concomitant]
     Active Substance: CLONAZEPAM
  7. ADDERALL [Concomitant]
     Active Substance: AMPHETAMINE ASPARTATE\AMPHETAMINE SULFATE\DEXTROAMPHETAMINE SACCHARATE\DEXTROAMPHETAMINE SULFATE
  8. TIZANADINE [Concomitant]
     Active Substance: TIZANIDINE
  9. PROZAC [Concomitant]
     Active Substance: FLUOXETINE HYDROCHLORIDE
  10. PLAQUENIL [Concomitant]
     Active Substance: HYDROXYCHLOROQUINE SULFATE
  11. RELAFIN [Concomitant]
     Active Substance: FLUVOXAMINE MALEATE
  12. VITAMIN D3 [Concomitant]
     Active Substance: CHOLECALCIFEROL

REACTIONS (8)
  - Pain [None]
  - Neuropathy peripheral [None]
  - Multiple sclerosis [None]
  - Hypersensitivity [None]
  - Alopecia [None]
  - Depression [None]
  - Infusion related reaction [None]
  - Suicidal ideation [None]

NARRATIVE: CASE EVENT DATE: 20170630
